FAERS Safety Report 10829538 (Version 1)
Quarter: 2015Q1

REPORT INFORMATION
  Report Type: Report from Study
  Country: US (occurrence: US)
  Receive Date: 20150219
  Receipt Date: 20150219
  Transmission Date: 20150721
  Serious: No
  Sender: FDA-Public Use
  Company Number: US-ABBVIE-14P-163-1187616-00

PATIENT
  Age: 44 Year
  Sex: Male

DRUGS (4)
  1. OXYCODONE [Concomitant]
     Active Substance: OXYCODONE
     Indication: PRODUCT USED FOR UNKNOWN INDICATION
  2. HUMIRA [Suspect]
     Active Substance: ADALIMUMAB
     Indication: CROHN^S DISEASE
     Dates: start: 201306
  3. HUMIRA [Suspect]
     Active Substance: ADALIMUMAB
     Dosage: SMALLER DOSE TO DESENSITIZE
  4. HUMIRA [Suspect]
     Active Substance: ADALIMUMAB

REACTIONS (3)
  - Rash erythematous [Recovered/Resolved]
  - Abscess [Unknown]
  - Drug ineffective [Unknown]

NARRATIVE: CASE EVENT DATE: 20140104
